FAERS Safety Report 15579091 (Version 1)
Quarter: 2018Q4

REPORT INFORMATION
  Report Type: Spontaneous
  Country: US (occurrence: US)
  Receive Date: 20181102
  Receipt Date: 20181102
  Transmission Date: 20190205
  Serious: No
  Sender: FDA-Public Use
  Company Number: None

PATIENT
  Age: 70 Year
  Sex: Female
  Weight: 80.1 kg

DRUGS (1)
  1. REMICADE [Suspect]
     Active Substance: INFLIXIMAB
     Indication: PSORIATIC ARTHROPATHY
     Dosage: ?          OTHER FREQUENCY:LOADING DOSE;?
     Route: 041
     Dates: start: 20180905, end: 20181101

REACTIONS (3)
  - Pruritus [None]
  - Dyspnoea [None]
  - Influenza [None]

NARRATIVE: CASE EVENT DATE: 20181101
